FAERS Safety Report 9856816 (Version 2)
Quarter: 2014Q1

REPORT INFORMATION
  Report Type: Spontaneous
  Country: GB (occurrence: GB)
  Receive Date: 20140130
  Receipt Date: 20140328
  Transmission Date: 20141002
  Serious: Yes (Hospitalization)
  Sender: FDA-Public Use
  Company Number: PHHY2014GB008640

PATIENT
  Age: 37 Year
  Sex: Female

DRUGS (1)
  1. LABETALOL [Suspect]
     Indication: BLOOD PRESSURE INCREASED
     Dosage: 100 MG, BID

REACTIONS (5)
  - Raynaud^s phenomenon [Recovered/Resolved]
  - Pain in extremity [Recovered/Resolved]
  - Nipple pain [Recovered/Resolved]
  - Skin discolouration [Recovered/Resolved]
  - Maternal exposure during pregnancy [Unknown]
